FAERS Safety Report 9645395 (Version 1)
Quarter: 2013Q4

REPORT INFORMATION
  Report Type: Report from Study
  Country: US (occurrence: US)
  Receive Date: 20131025
  Receipt Date: 20131025
  Transmission Date: 20140711
  Serious: Yes (Hospitalization, Other)
  Sender: FDA-Public Use
  Company Number: US-ABBVIE-13P-163-1159486-00

PATIENT
  Age: 36 Year
  Sex: Male
  Weight: 87.62 kg

DRUGS (6)
  1. HUMIRA [Suspect]
     Indication: AUTOIMMUNE DISORDER
     Route: 058
     Dates: start: 20130830
  2. HUMIRA [Suspect]
     Indication: CROHN^S DISEASE
  3. PROTONIX [Concomitant]
     Indication: GASTROOESOPHAGEAL REFLUX DISEASE
  4. PROTONIX [Concomitant]
     Indication: BARRETT^S OESOPHAGUS
  5. LISINOPRIL [Concomitant]
     Indication: HYPERTENSION
  6. VITAMIN B12 [Concomitant]
     Indication: VITAMIN SUPPLEMENTATION

REACTIONS (4)
  - Intestinal obstruction [Recovered/Resolved]
  - Intestinal obstruction [Unknown]
  - Abscess [Unknown]
  - Clostridium difficile infection [Unknown]
